FAERS Safety Report 26004782 (Version 2)
Quarter: 2025Q4

REPORT INFORMATION
  Report Type: Spontaneous
  Country: CH (occurrence: CH)
  Receive Date: 20251106
  Receipt Date: 20251125
  Transmission Date: 20260117
  Serious: Yes (Death, Hospitalization, Other)
  Sender: EXELIXIS
  Company Number: CH-IPSEN Group, Research and Development-2025-26910

PATIENT
  Age: 56 Year
  Sex: Male

DRUGS (1)
  1. CABOMETYX [Suspect]
     Active Substance: CABOZANTINIB S-MALATE
     Indication: Clear cell renal cell carcinoma
     Dosage: 40 MG, QD
     Dates: start: 20250707, end: 20250725

REACTIONS (16)
  - Malignant neoplasm progression [Fatal]
  - Osteomyelitis [Unknown]
  - Cachexia [Unknown]
  - Jaw fistula [Unknown]
  - Cancer pain [Unknown]
  - Osteolysis [Unknown]
  - Hypoaesthesia [Unknown]
  - Trismus [Unknown]
  - Nausea [Unknown]
  - Asthenia [Unknown]
  - Pain [Unknown]
  - Haemoptysis [Unknown]
  - Decreased appetite [Unknown]
  - Constipation [Unknown]
  - Cough [Unknown]
  - Dyspnoea [Unknown]
